FAERS Safety Report 4341705-0 (Version None)
Quarter: 2004Q2

REPORT INFORMATION
  Report Type: 
  Country: None (occurrence: None)
  Receive Date: 20040415
  Receipt Date: 20040329
  Transmission Date: 20050107
  Serious: Yes (Other)
  Sender: FDA-Public Use
  Company Number: USA031254370

PATIENT
  Age: 75 Year
  Sex: Female

DRUGS (8)
  1. FORTEO [Suspect]
     Indication: OSTEOPOROSIS
     Dosage: 20 UG/DAY
     Dates: start: 20031205
  2. VIACTIV [Concomitant]
  3. TUMS ULTRA(CALCIUM CARBONATE) [Concomitant]
  4. VIOXX [Concomitant]
  5. LIPITOR [Concomitant]
  6. NIFEDIPINE [Concomitant]
  7. AVAPRO [Concomitant]
  8. CALCIUM [Concomitant]

REACTIONS (12)
  - DIARRHOEA [None]
  - DIZZINESS [None]
  - FALL [None]
  - FEELING ABNORMAL [None]
  - FLUID RETENTION [None]
  - GASTRIC DISORDER [None]
  - JOINT SWELLING [None]
  - MALAISE [None]
  - NAUSEA [None]
  - PAIN IN EXTREMITY [None]
  - PHARMACEUTICAL PRODUCT COMPLAINT [None]
  - SENSATION OF HEAVINESS [None]
